FAERS Safety Report 4778503-X (Version None)
Quarter: 2005Q3

REPORT INFORMATION
  Report Type: 
  Country: None (occurrence: None)
  Receive Date: 20050926
  Receipt Date: 20041021
  Transmission Date: 20060218
  Serious: Yes (Other)
  Sender: FDA-Public Use
  Company Number: US-MERCK-0410USA03270

PATIENT
  Sex: Male

DRUGS (6)
  1. VIOXX [Suspect]
     Indication: ARTHRITIS
     Route: 048
     Dates: end: 20040901
  2. VIOXX [Suspect]
     Route: 048
     Dates: end: 20040901
  3. VIOXX [Suspect]
     Route: 048
     Dates: end: 20040901
  4. VIOXX [Suspect]
     Indication: PROCEDURAL PAIN
     Route: 048
     Dates: end: 20040901
  5. VIOXX [Suspect]
     Route: 048
     Dates: end: 20040901
  6. VIOXX [Suspect]
     Route: 048
     Dates: end: 20040901

REACTIONS (5)
  - CARDIAC DISORDER [None]
  - HEADACHE [None]
  - MYOCARDIAL INFARCTION [None]
  - NECK INJURY [None]
  - PRESCRIBED OVERDOSE [None]
